FAERS Safety Report 9398720 (Version 1)
Quarter: 2013Q3

REPORT INFORMATION
  Report Type: Not Available
  Country: DE (occurrence: DE)
  Receive Date: 20130712
  Receipt Date: 20130712
  Transmission Date: 20140515
  Serious: Yes (Congenital Anomaly)
  Sender: FDA-Public Use
  Company Number: DE-NAPPMUNDI-DEU-2013-0011937

PATIENT
  Sex: Female
  Weight: 2.44 kg

DRUGS (7)
  1. MST CONTINUS [Suspect]
     Indication: FOETAL EXPOSURE DURING PREGNANCY
     Dosage: UNK, SEE TEXT
  2. MST CONTINUS [Suspect]
     Indication: FOETAL EXPOSURE DURING PREGNANCY
     Dosage: UNK, SEE TEXT
  3. MST CONTINUS [Suspect]
     Dosage: 120 MG, DAILY
     Route: 064
  4. MST CONTINUS [Suspect]
     Dosage: 120 MG, DAILY
     Route: 064
  5. L-THYROXIN [Concomitant]
     Indication: FOETAL EXPOSURE DURING PREGNANCY
     Dosage: 50 MCG, DAILY
     Route: 064
  6. MOVICOL                            /01625101/ [Concomitant]
     Indication: FOETAL EXPOSURE DURING PREGNANCY
     Dosage: 26.25 G, DAILY
     Route: 064
  7. FOLIO [Concomitant]
     Indication: FOETAL EXPOSURE DURING PREGNANCY
     Dosage: 0.4 MG, DAILY
     Route: 064

REACTIONS (3)
  - Atrial septal defect [Unknown]
  - Pulmonary artery stenosis congenital [Unknown]
  - Foetal exposure during pregnancy [Unknown]
